FAERS Safety Report 11511372 (Version 2)
Quarter: 2015Q4

REPORT INFORMATION
  Report Type: Report from Study
  Country: US (occurrence: US)
  Receive Date: 20150915
  Receipt Date: 20151014
  Transmission Date: 20160304
  Serious: Yes (Other)
  Sender: FDA-Public Use
  Company Number: US-GILEAD-2015-0171338

PATIENT
  Age: 49 Year
  Sex: Female

DRUGS (1)
  1. SOFOSBUVIR [Suspect]
     Active Substance: SOFOSBUVIR
     Indication: PRODUCT USED FOR UNKNOWN INDICATION
     Dosage: 400 MG, QD
     Route: 048
     Dates: start: 20150625

REACTIONS (4)
  - Tooth extraction [Unknown]
  - Oral surgery [Unknown]
  - Tooth fracture [Unknown]
  - Abscess oral [Unknown]

NARRATIVE: CASE EVENT DATE: 2015
